FAERS Safety Report 5903833-5 (Version None)
Quarter: 2008Q3

REPORT INFORMATION
  Report Type: 
  Country: None (occurrence: None)
  Receive Date: 20080919
  Receipt Date: 20080618
  Transmission Date: 20090109
  Serious: No
  Sender: FDA-Public Use
  Company Number: US-WYE-H04601708

PATIENT
  Sex: Female

DRUGS (1)
  1. PRISTIQ [Suspect]
     Indication: ANXIETY
     Dosage: 50 MG 1X PER 1 DAY, ORAL
     Route: 048
     Dates: start: 20080604

REACTIONS (5)
  - ANXIETY [None]
  - CONDITION AGGRAVATED [None]
  - FATIGUE [None]
  - POOR QUALITY SLEEP [None]
  - WEIGHT INCREASED [None]
